FAERS Safety Report 26170139 (Version 3)
Quarter: 2025Q4

REPORT INFORMATION
  Report Type: Spontaneous
  Country: AR (occurrence: AR)
  Receive Date: 20251217
  Receipt Date: 20251231
  Transmission Date: 20260118
  Serious: Yes (Other)
  Sender: MYLAN
  Company Number: AR-MYLANLABS-2025M1107088

PATIENT
  Age: 11 Year
  Sex: Male

DRUGS (1)
  1. CLOZAPINE [Suspect]
     Active Substance: CLOZAPINE
     Indication: Childhood psychosis
     Dosage: 300 MILLIGRAM, QD
     Dates: start: 20250912

REACTIONS (11)
  - Neutropenia [Recovered/Resolved]
  - Basophil count increased [Not Recovered/Not Resolved]
  - Lymphocyte count increased [Recovering/Resolving]
  - Monocyte count increased [Not Recovered/Not Resolved]
  - Red blood cell count decreased [Recovering/Resolving]
  - Haematocrit decreased [Recovering/Resolving]
  - Haemoglobin decreased [Recovering/Resolving]
  - Salivary hypersecretion [Unknown]
  - Constipation [Unknown]
  - Product use issue [Unknown]
  - Product use in unapproved indication [Unknown]

NARRATIVE: CASE EVENT DATE: 20250912
